FAERS Safety Report 5406854-4 (Version None)
Quarter: 2007Q3

REPORT INFORMATION
  Report Type: 
  Country: None (occurrence: None)
  Receive Date: 20070807
  Receipt Date: 20070726
  Transmission Date: 20080115
  Serious: Yes (Death)
  Sender: FDA-Public Use
  Company Number: HQWYE370902AUG07

PATIENT

DRUGS (1)
  1. IBUPROFEN [Suspect]
     Dosage: } 20 G
     Route: 065

REACTIONS (2)
  - OVERDOSE [None]
  - SEPSIS [None]
